FAERS Safety Report 11168921 (Version 1)
Quarter: 2015Q2

REPORT INFORMATION
  Report Type: Report from Study
  Country: KR (occurrence: KR)
  Receive Date: 20150605
  Receipt Date: 20150605
  Transmission Date: 20150821
  Serious: Yes (Hospitalization)
  Sender: FDA-Public Use
  Company Number: KR-EISAI MEDICAL RESEARCH-E7389-04177-CLI-KR

PATIENT
  Age: 49 Year
  Sex: Female
  Weight: 55 kg

DRUGS (23)
  1. HALAVEN [Suspect]
     Active Substance: ERIBULIN MESYLATE
     Route: 041
     Dates: start: 20130917, end: 20130917
  2. ENTELON [Concomitant]
  3. MUCOSTA [Concomitant]
     Active Substance: REBAMIPIDE
  4. MACPERAN [Concomitant]
  5. ZANTAC [Concomitant]
     Active Substance: RANITIDINE HYDROCHLORIDE
  6. HANPEZON [Concomitant]
  7. KEROMIN [Concomitant]
  8. DUROGESIC [Concomitant]
     Active Substance: FENTANYL
  9. TRAMADOL HCL [Concomitant]
     Active Substance: TRAMADOL HYDROCHLORIDE
  10. SMOFLIPID 20% [Concomitant]
  11. GRASIN [Concomitant]
  12. HALAVEN [Suspect]
     Active Substance: ERIBULIN MESYLATE
     Route: 041
     Dates: start: 20131004, end: 20131004
  13. JURNISTA IR [Concomitant]
  14. MEROPEN [Concomitant]
     Active Substance: MEROPENEM
  15. AKOCIN INJECTION [Concomitant]
  16. TARGIN [Concomitant]
     Active Substance: NALOXONE HYDROCHLORIDE\OXYCODONE HYDROCHLORIDE
  17. CURAN [Concomitant]
  18. POVIDONE IODINE [Concomitant]
     Active Substance: POVIDONE-IODINE
  19. HALAVEN [Suspect]
     Active Substance: ERIBULIN MESYLATE
     Indication: BREAST CANCER
     Route: 041
     Dates: start: 20130827, end: 20130827
  20. KYONGO CEFTRIAXONE SODIUM [Concomitant]
  21. DENOGAN [Concomitant]
  22. MEGETROL SUSPENSION [Concomitant]
  23. TANTUM SOLUTION [Concomitant]

REACTIONS (1)
  - Pseudomonal sepsis [Recovered/Resolved]

NARRATIVE: CASE EVENT DATE: 20130903
